FAERS Safety Report 9109672 (Version 1)
Quarter: 2013Q1

REPORT INFORMATION
  Report Type: Spontaneous
  Country: US (occurrence: US)
  Receive Date: 20130222
  Receipt Date: 20130222
  Transmission Date: 20140127
  Serious: Yes (Hospitalization, Other)
  Sender: FDA-Public Use
  Company Number: US-BRISTOL-MYERS SQUIBB COMPANY-17384850

PATIENT
  Age: 43 Year
  Sex: Male
  Weight: 98.41 kg

DRUGS (1)
  1. SPRYCEL [Suspect]

REACTIONS (1)
  - Bone marrow transplant [Unknown]
